FAERS Safety Report 5129950-8 (Version None)
Quarter: 2006Q4

REPORT INFORMATION
  Report Type: 
  Country: None (occurrence: None)
  Receive Date: 20061013
  Receipt Date: 20060926
  Transmission Date: 20070319
  Serious: Yes (Other)
  Sender: FDA-Public Use
  Company Number: ENTC2006-0281

PATIENT
  Sex: Male

DRUGS (4)
  1. STALEVO 100 [Suspect]
     Indication: PARKINSON'S DISEASE
     Dosage: 750/187,5/1000 MG ORAL
     Route: 048
  2. IPERTEN [Suspect]
     Dosage: ORAL
     Route: 048
  3. SINEMET [Concomitant]
  4. SINEMET [Concomitant]

REACTIONS (1)
  - CYTOLYTIC HEPATITIS [None]
